FAERS Safety Report 15950354 (Version 1)
Quarter: 2019Q1

REPORT INFORMATION
  Report Type: Spontaneous
  Country: PT (occurrence: PT)
  Receive Date: 20190212
  Receipt Date: 20190212
  Transmission Date: 20190417
  Serious: Yes (Death)
  Sender: FDA-Public Use
  Company Number: PT-ROCHE-2260050

PATIENT
  Age: 46 Year
  Sex: Male
  Weight: 87 kg

DRUGS (1)
  1. BEVACIZUMAB. [Suspect]
     Active Substance: BEVACIZUMAB
     Indication: GLIOMA
     Dosage: 870 MG D1 E D15
     Route: 042
     Dates: start: 20180418, end: 20180807

REACTIONS (6)
  - Vomiting [Fatal]
  - Off label use [Fatal]
  - Product use in unapproved indication [Fatal]
  - Pseudocyst [Fatal]
  - Abdominal discomfort [Fatal]
  - Feeding disorder [Fatal]

NARRATIVE: CASE EVENT DATE: 20180418
